FAERS Safety Report 13291674 (Version 2)
Quarter: 2018Q1

REPORT INFORMATION
  Report Type: Spontaneous
  Country: US (occurrence: US)
  Receive Date: 20170302
  Receipt Date: 20180221
  Transmission Date: 20180508
  Serious: No
  Sender: FDA-Public Use
  Company Number: US-PERRIGO-16US023046

PATIENT
  Age: 73 Year
  Sex: Female
  Weight: 77.98 kg

DRUGS (2)
  1. LOPERAMIDE HYDROCHLORIDE. [Suspect]
     Active Substance: LOPERAMIDE HYDROCHLORIDE
     Indication: DIARRHOEA
     Dosage: 4 TO 6 MG, 1 TO 2 TIMES DAILY
     Route: 048
     Dates: end: 20170321
  2. LOPERAMIDE HYDROCHLORIDE. [Suspect]
     Active Substance: LOPERAMIDE HYDROCHLORIDE
     Indication: ABDOMINAL DISCOMFORT
     Dosage: 4 MG, QD
     Route: 048
     Dates: start: 20161219

REACTIONS (3)
  - Off label use [Recovered/Resolved]
  - Intentional product use issue [Recovered/Resolved]
  - Incorrect drug administration duration [Recovered/Resolved]

NARRATIVE: CASE EVENT DATE: 20161219
